FAERS Safety Report 9633245 (Version 1)
Quarter: 2013Q4

REPORT INFORMATION
  Report Type: Spontaneous
  Country: US (occurrence: None)
  Receive Date: 20131018
  Receipt Date: 20131018
  Transmission Date: 20140711
  Serious: Yes (Hospitalization, Other)
  Sender: FDA-Public Use
  Company Number: None

PATIENT
  Age: 52 Year
  Sex: Female
  Weight: 74.84 kg

DRUGS (2)
  1. ACTONEL [Suspect]
     Indication: BONE DISORDER
     Dosage: 1 TABLET
     Route: 048
     Dates: start: 20130811, end: 20130929
  2. ACTONEL [Suspect]
     Indication: CHEMOTHERAPY
     Dosage: 1 TABLET
     Route: 048
     Dates: start: 20130811, end: 20130929

REACTIONS (2)
  - Femur fracture [None]
  - Pathological fracture [None]
